FAERS Safety Report 8309469-3 (Version None)
Quarter: 2012Q2

REPORT INFORMATION
  Report Type: 
  Country: None (occurrence: None)
  Receive Date: 20120424
  Receipt Date: 20120424
  Transmission Date: 20120825
  Serious: Yes (Death)
  Sender: FDA-Public Use
  Company Number: None

PATIENT
  Sex: Male
  Weight: 90 kg

DRUGS (1)
  1. CLOLAR [Suspect]
     Indication: ACUTE MYELOID LEUKAEMIA
     Dosage: 300 MG
     Dates: start: 20120322, end: 20120326

REACTIONS (7)
  - PNEUMONITIS [None]
  - PLEURAL EFFUSION [None]
  - CARDIO-RESPIRATORY ARREST [None]
  - UNRESPONSIVE TO STIMULI [None]
  - FEBRILE NEUTROPENIA [None]
  - PANCYTOPENIA [None]
  - MOUTH HAEMORRHAGE [None]
